FAERS Safety Report 10253745 (Version 1)
Quarter: 2014Q2

REPORT INFORMATION
  Report Type: Spontaneous
  Country: BR (occurrence: BR)
  Receive Date: 20140623
  Receipt Date: 20140623
  Transmission Date: 20141212
  Serious: Yes (Other)
  Sender: FDA-Public Use
  Company Number: BR-PFIZER INC-2014170179

PATIENT
  Age: 40 Year
  Sex: Female

DRUGS (12)
  1. PANTOPRAZOLE [Suspect]
     Dosage: UNK
     Route: 048
  2. FLUOXETINE HCL [Suspect]
     Dosage: UNK
  3. SPIRONOLACTONE [Suspect]
     Dosage: UNK
  4. LYRICA [Suspect]
     Dosage: UNK
  5. TRAMAL [Suspect]
     Dosage: UNK
  6. TRILEPTAL [Suspect]
     Dosage: 0.5 DF, 1X/DAY (300MG TABLET)
  7. LOSARTAN [Suspect]
     Dosage: UNK
  8. ATENOLOL [Suspect]
     Dosage: UNK
  9. RIVOTRIL [Suspect]
     Dosage: UNK
  10. SIRDALUD [Suspect]
     Dosage: UNK
  11. MIOSAN [Suspect]
     Dosage: UNK
  12. MIRENA [Suspect]
     Dosage: UNK

REACTIONS (1)
  - Angioedema [Unknown]
